FAERS Safety Report 9240229 (Version 1)
Quarter: 2013Q1

REPORT INFORMATION
  Report Type: Spontaneous
  Country: US (occurrence: None)
  Receive Date: 20121109
  Receipt Date: 20121109
  Transmission Date: 20140127
  Serious: Yes (Other)
  Sender: FDA-Public Use
  Company Number: AUR-APL-2012-03183

PATIENT
  Age: 56 Year
  Sex: Female
  Weight: 88.89 kg

DRUGS (3)
  1. VENLAFAXINE [Suspect]
     Indication: DEPRESSION
     Route: 048
  2. EFFEXOR XR [Suspect]
     Indication: DEPRESSION
     Route: 048
  3. LORAZEPAM (LORAZEPAM) [Concomitant]

REACTIONS (2)
  - Depression [None]
  - Malaise [None]
